FAERS Safety Report 7945404-5 (Version None)
Quarter: 2011Q4

REPORT INFORMATION
  Report Type: 
  Country: None (occurrence: None)
  Receive Date: 20111129
  Receipt Date: 20110925
  Transmission Date: 20120403
  Serious: No
  Sender: FDA-Public Use
  Company Number: US-GLAXOSMITHKLINE-A0946327A

PATIENT
  Sex: Female

DRUGS (3)
  1. BUPROPION HYDROCHLORIDE [Suspect]
     Indication: MAJOR DEPRESSION
     Dosage: 300MG UNKNOWN
     Route: 065
  2. ZOLOFT [Concomitant]
     Dosage: 150MG PER DAY
     Route: 065
  3. WELLBUTRIN SR [Suspect]
     Indication: MAJOR DEPRESSION
     Dosage: 150MG TWICE PER DAY
     Route: 065

REACTIONS (1)
  - DRUG EFFECT DECREASED [None]
